FAERS Safety Report 7992912-7 (Version None)
Quarter: 2011Q4

REPORT INFORMATION
  Report Type: 
  Country: None (occurrence: None)
  Receive Date: 20111219
  Receipt Date: 20110204
  Transmission Date: 20120403
  Serious: No
  Sender: FDA-Public Use
  Company Number: US-ASTRAZENECA-2011SE06857

PATIENT
  Age: 68 Year
  Sex: Female
  Weight: 50 kg

DRUGS (3)
  1. CRESTOR [Suspect]
     Indication: BLOOD CHOLESTEROL ABNORMAL
     Route: 048
  2. CRESTOR [Suspect]
     Route: 048
  3. CRESTOR [Suspect]
     Route: 048

REACTIONS (4)
  - NAUSEA [None]
  - BLOOD PRESSURE INCREASED [None]
  - AMNESIA [None]
  - HEADACHE [None]
